FAERS Safety Report 14566588 (Version 2)
Quarter: 2018Q1

REPORT INFORMATION
  Report Type: Other
  Country: IT (occurrence: IT)
  Receive Date: 20180223
  Receipt Date: 20180327
  Transmission Date: 20180509
  Serious: Yes (Other)
  Sender: FDA-Public Use
  Company Number: IT-MACLEODS PHARMACEUTICALS US LTD-MAC2018010227

PATIENT

DRUGS (6)
  1. CELECOXIB CAPSULE [Suspect]
     Active Substance: CELECOXIB
     Indication: INTENTIONAL SELF-INJURY
     Dosage: 2 DF, TOTAL, CAPSULE, HARD
     Route: 048
     Dates: start: 20170501, end: 20170501
  2. FLUCONAZOLE. [Suspect]
     Active Substance: FLUCONAZOLE
     Indication: INTENTIONAL SELF-INJURY
     Dosage: 1 DF, TOTAL, POWDER FOR ORAL SUSPENSION
     Route: 048
     Dates: start: 20170501, end: 20170501
  3. KEPPRA [Suspect]
     Active Substance: LEVETIRACETAM
     Indication: INTENTIONAL SELF-INJURY
     Dosage: 2 DF, STRENGTH: 1000 MG, 2 DF, TOTAL
     Route: 048
     Dates: start: 20170501, end: 20170501
  4. RAMIPRIL. [Suspect]
     Active Substance: RAMIPRIL
     Indication: INTENTIONAL SELF-INJURY
     Dosage: 5 MG, TOTAL
     Route: 048
     Dates: start: 20170501, end: 20170501
  5. DELTACORTENE [Suspect]
     Active Substance: PREDNISONE
     Indication: INTENTIONAL SELF-INJURY
     Dosage: 3 DF, STRENGTH: 25 MG, 3 DF, TOTAL
     Route: 048
     Dates: start: 20170501, end: 20170501
  6. DUFASTON [Suspect]
     Active Substance: DYDROGESTERONE
     Indication: INTENTIONAL SELF-INJURY
     Dosage: 2 DF, UNK, STRENGTH: 10 MG, 2 DF, TOTAL
     Route: 048
     Dates: start: 20170501, end: 20170501

REACTIONS (5)
  - Toxicity to various agents [Unknown]
  - Headache [Unknown]
  - Intentional self-injury [Unknown]
  - Drug abuse [Unknown]
  - Drug use disorder [Recovered/Resolved]

NARRATIVE: CASE EVENT DATE: 20170501
